FAERS Safety Report 7568856-1 (Version None)
Quarter: 2011Q2

REPORT INFORMATION
  Report Type: 
  Country: None (occurrence: None)
  Receive Date: 20110623
  Receipt Date: 20110621
  Transmission Date: 20111010
  Serious: Yes (Hospitalization)
  Sender: FDA-Public Use
  Company Number: IT-TEVA-287375ISR

PATIENT
  Sex: Male

DRUGS (3)
  1. DELORAZEPAM [Interacting]
  2. RISPERIDONE [Interacting]
     Route: 048
  3. CITALOPRAM HYDROBROMIDE [Suspect]
     Indication: DEPRESSION
     Dosage: 10 GTT;
     Route: 048
     Dates: start: 20110606, end: 20110609

REACTIONS (4)
  - BRADYKINESIA [None]
  - BRADYPHRENIA [None]
  - DRUG INTERACTION [None]
  - DYSPHAGIA [None]
